FAERS Safety Report 10152592 (Version 2)
Quarter: 2014Q2

REPORT INFORMATION
  Report Type: Spontaneous
  Country: BR (occurrence: BR)
  Receive Date: 20140505
  Receipt Date: 20140513
  Transmission Date: 20141212
  Serious: No
  Sender: FDA-Public Use
  Company Number: BR-PFIZER INC-2014117858

PATIENT
  Age: 41 Year
  Sex: Male

DRUGS (2)
  1. VFEND [Suspect]
     Indication: ASPERGILLUS INFECTION
     Dosage: 400 MG, SINGLE
     Route: 048
     Dates: start: 20140327, end: 20140327
  2. VFEND [Suspect]
     Dosage: 200 MG, 2X/DAY
     Dates: start: 20140328

REACTIONS (1)
  - Drug effect delayed [Unknown]
